FAERS Safety Report 6924038-5 (Version None)
Quarter: 2010Q3

REPORT INFORMATION
  Report Type: 
  Country: None (occurrence: None)
  Receive Date: 20100813
  Receipt Date: 20100804
  Transmission Date: 20110219
  Serious: Yes (Other)
  Sender: FDA-Public Use
  Company Number: DK-ABBOTT-10P-044-0662102-00

PATIENT
  Sex: Female

DRUGS (1)
  1. HUMIRA [Suspect]
     Indication: PSORIATIC ARTHROPATHY
     Dates: start: 20100401

REACTIONS (5)
  - BLOOD URINE PRESENT [None]
  - FATIGUE [None]
  - HEADACHE [None]
  - MALAISE [None]
  - PYREXIA [None]
